FAERS Safety Report 11542602 (Version 1)
Quarter: 2015Q3

REPORT INFORMATION
  Report Type: Spontaneous
  Country: US (occurrence: US)
  Receive Date: 20150903
  Receipt Date: 20150903
  Transmission Date: 20151125
  Serious: No
  Sender: FDA-Public Use
  Company Number: US-ELI_LILLY_AND_COMPANY-US201204009256

PATIENT
  Sex: Female

DRUGS (1)
  1. HUMALOG [Suspect]
     Active Substance: INSULIN LISPRO
     Dosage: UNK, UNKNOWN

REACTIONS (9)
  - Drooling [Unknown]
  - Lung disorder [Unknown]
  - Malaise [Unknown]
  - Anorectal disorder [Unknown]
  - General physical health deterioration [Unknown]
  - Incontinence [Unknown]
  - Skin lesion [Unknown]
  - Product tampering [Unknown]
  - Rhinorrhoea [Unknown]

NARRATIVE: CASE EVENT DATE: 2008
